FAERS Safety Report 22086983 (Version 1)
Quarter: 2023Q1

REPORT INFORMATION
  Report Type: Spontaneous
  Country: US (occurrence: None)
  Receive Date: 20230313
  Receipt Date: 20230313
  Transmission Date: 20230418
  Serious: No
  Sender: FDA-Public Use
  Company Number: 2023A050394

PATIENT
  Age: 79 Year
  Sex: Female

DRUGS (1)
  1. FASENRA [Suspect]
     Active Substance: BENRALIZUMAB
     Indication: Asthma
     Dosage: UNKNOWN
     Route: 058

REACTIONS (4)
  - Disorientation [Unknown]
  - Palpitations [Unknown]
  - Hallucination [Unknown]
  - Migraine [Unknown]

NARRATIVE: CASE EVENT DATE: 20230130
